FAERS Safety Report 7784874-2 (Version None)
Quarter: 2011Q3

REPORT INFORMATION
  Report Type: 
  Country: None (occurrence: None)
  Receive Date: 20110928
  Receipt Date: 20110919
  Transmission Date: 20111222
  Serious: Yes (Hospitalization)
  Sender: FDA-Public Use
  Company Number: BR-ASTRAZENECA-2011SE56720

PATIENT
  Age: 66 Year
  Sex: Male
  Weight: 89 kg

DRUGS (13)
  1. METOPROLOL TARTRATE [Suspect]
     Indication: HYPERTENSION
     Route: 048
     Dates: start: 20010101
  2. MODURETIC 5-50 [Concomitant]
     Indication: DIURETIC THERAPY
     Dosage: DAILY
     Route: 048
     Dates: start: 20010101
  3. BUFFERIN CARDIO [Concomitant]
     Indication: ANTICOAGULANT THERAPY
     Dosage: DAILY
     Route: 048
     Dates: start: 20010101
  4. SLOW-K [Concomitant]
     Indication: ELECTROLYTE SUBSTITUTION THERAPY
     Dosage: DAILY
     Route: 048
     Dates: start: 20010101
  5. OMEPRAZOLE [Suspect]
     Indication: GASTRITIS
     Route: 048
     Dates: end: 20090101
  6. CRESTOR [Suspect]
     Route: 048
     Dates: start: 20110901
  7. NEXIUM [Suspect]
     Indication: GASTRITIS
     Route: 048
     Dates: start: 20090101
  8. MODURETIC 5-50 [Concomitant]
     Indication: HYPERTENSION
     Dosage: DAILY
     Route: 048
     Dates: start: 20010101
  9. CRESTOR [Suspect]
     Indication: HYPERCHOLESTEROLAEMIA
     Route: 048
     Dates: start: 20070101, end: 20110901
  10. LIPITOR [Suspect]
     Indication: HYPERCHOLESTEROLAEMIA
     Dosage: DAILY
     Route: 048
     Dates: start: 20010101, end: 20070101
  11. RAMIPRIL [Concomitant]
     Indication: HYPERTENSION
     Route: 048
     Dates: start: 20010101
  12. PLAVIX [Concomitant]
     Indication: ANTICOAGULANT THERAPY
     Route: 048
     Dates: start: 20010101
  13. METFFORMIN HYDROCHLORIDE [Concomitant]
     Indication: DIABETES MELLITUS
     Dosage: DAILY
     Route: 048
     Dates: start: 20110301

REACTIONS (7)
  - DYSPNOEA [None]
  - MYALGIA [None]
  - DYSPEPSIA [None]
  - ANGINA PECTORIS [None]
  - MALAISE [None]
  - GASTRITIS [None]
  - DRUG ADMINISTRATION ERROR [None]
